FAERS Safety Report 14565338 (Version 7)
Quarter: 2018Q4

REPORT INFORMATION
  Report Type: Report from Study
  Country: None (occurrence: US)
  Receive Date: 20180223
  Receipt Date: 20181114
  Transmission Date: 20190204
  Serious: Yes (Other)
  Sender: FDA-Public Use
  Company Number: US-ABBVIE-18K-163-2264779-00

PATIENT
  Age: 35 Year
  Sex: Female

DRUGS (3)
  1. HUMIRA [Suspect]
     Active Substance: ADALIMUMAB
     Indication: CROHN^S DISEASE
     Dosage: DAY 1
     Route: 058
     Dates: start: 20180210, end: 20180210
  2. HUMIRA [Suspect]
     Active Substance: ADALIMUMAB
     Route: 058
     Dates: start: 20180303, end: 20180303
  3. HUMIRA [Suspect]
     Active Substance: ADALIMUMAB
     Route: 058
     Dates: start: 20180317, end: 2018

REACTIONS (19)
  - Fatigue [Unknown]
  - Decreased appetite [Not Recovered/Not Resolved]
  - Mean platelet volume decreased [Unknown]
  - Diarrhoea [Not Recovered/Not Resolved]
  - Carbon dioxide decreased [Unknown]
  - Constipation [Not Recovered/Not Resolved]
  - Nitrite urine present [Unknown]
  - Abnormal faeces [Not Recovered/Not Resolved]
  - Blood glucose increased [Unknown]
  - Nasopharyngitis [Not Recovered/Not Resolved]
  - Intestinal obstruction [Recovering/Resolving]
  - Gastrointestinal inflammation [Unknown]
  - Injection site bruising [Not Recovered/Not Resolved]
  - Blood creatine decreased [Unknown]
  - Blood chloride increased [Unknown]
  - Weight decreased [Not Recovered/Not Resolved]
  - Injection site pain [Not Recovered/Not Resolved]
  - Pyrexia [Recovered/Resolved]
  - Gastrointestinal wall thickening [Unknown]

NARRATIVE: CASE EVENT DATE: 2018
